FAERS Safety Report 20939611 (Version 1)
Quarter: 2022Q2

REPORT INFORMATION
  Report Type: Spontaneous
  Country: US (occurrence: None)
  Receive Date: 20220609
  Receipt Date: 20220609
  Transmission Date: 20220721
  Serious: Yes (Death, Hospitalization)
  Sender: FDA-Public Use
  Company Number: None

PATIENT
  Age: 23 Year
  Sex: Female
  Weight: 43.6 kg

DRUGS (5)
  1. CYCLOPHOSPHAMIDE [Suspect]
     Active Substance: CYCLOPHOSPHAMIDE
     Dates: end: 20220518
  2. CYTARABINE [Suspect]
     Active Substance: CYTARABINE
     Dates: end: 20220528
  3. PEG/L-ASPARAGINASE [Suspect]
     Active Substance: PEGASPARGASE
     Dates: end: 20220601
  4. THIOGUANINE ANHYDROUS [Suspect]
     Active Substance: THIOGUANINE ANHYDROUS
     Dates: end: 20220531
  5. VINCRISTINE SULFATE [Suspect]
     Active Substance: VINCRISTINE SULFATE
     Dates: end: 20220601

REACTIONS (8)
  - Apnoea [None]
  - Unresponsive to stimuli [None]
  - Subdural haematoma [None]
  - Toxicity to various agents [None]
  - Encephalopathy [None]
  - Colitis [None]
  - Brain herniation [None]
  - Pulmonary haemosiderosis [None]

NARRATIVE: CASE EVENT DATE: 20220601
